FAERS Safety Report 23616758 (Version 1)
Quarter: 2024Q1

REPORT INFORMATION
  Report Type: Spontaneous
  Country: US (occurrence: None)
  Receive Date: 20240308
  Receipt Date: 20240308
  Transmission Date: 20240410
  Serious: Yes (Hospitalization)
  Sender: FDA-Public Use
  Company Number: None

PATIENT
  Age: 45 Year
  Sex: Female

DRUGS (1)
  1. TEZSPIRE [Suspect]
     Active Substance: TEZEPELUMAB-EKKO
     Dosage: OTHER FREQUENCY : EVERY 28 DAYS;?
     Route: 058

REACTIONS (3)
  - Asthma [None]
  - Influenza [None]
  - Aphonia [None]

NARRATIVE: CASE EVENT DATE: 20221220
